FAERS Safety Report 15089106 (Version 3)
Quarter: 2018Q4

REPORT INFORMATION
  Report Type: Spontaneous
  Country: US (occurrence: US)
  Receive Date: 20180629
  Receipt Date: 20181129
  Transmission Date: 20190204
  Serious: Yes (Other)
  Sender: FDA-Public Use
  Company Number: US-SA-2018SA166263

PATIENT
  Age: 71 Year
  Sex: Female

DRUGS (2)
  1. AMBIEN CR [Suspect]
     Active Substance: ZOLPIDEM TARTRATE
     Dosage: 12.5 MG, HS
     Route: 065
  2. AMBIEN CR [Suspect]
     Active Substance: ZOLPIDEM TARTRATE
     Dosage: 6.5 MG, HS

REACTIONS (7)
  - Insomnia [Unknown]
  - Fatigue [Unknown]
  - Peripheral swelling [Unknown]
  - Stress [Unknown]
  - Pain [Unknown]
  - Rheumatoid arthritis [Unknown]
  - Quality of life decreased [Unknown]
